FAERS Safety Report 5480700-5 (Version None)
Quarter: 2007Q4

REPORT INFORMATION
  Report Type: 
  Country: None (occurrence: None)
  Receive Date: 20071009
  Receipt Date: 20070926
  Transmission Date: 20080405
  Serious: Yes (Hospitalization, Other)
  Sender: FDA-Public Use
  Company Number: US-ELI_LILLY_AND_COMPANY-US200707004937

PATIENT
  Sex: Female
  Weight: 87.528 kg

DRUGS (6)
  1. CYMBALTA [Suspect]
     Indication: ARTHRALGIA
     Dosage: 30 MG, 2/D
     Dates: start: 20060901, end: 20070716
  2. CYMBALTA [Suspect]
     Dosage: 30 MG, 2/D
     Dates: start: 20061229, end: 20070716
  3. CYMBALTA [Suspect]
     Dosage: 20 MG, 2/D
     Dates: start: 20070525, end: 20070716
  4. CYMBALTA [Suspect]
     Dosage: 20 MG, DAILY (1/D)
     Dates: start: 20070530, end: 20070716
  5. CYMBALTA [Suspect]
     Dosage: 20 MG, OTHER
     Dates: start: 20070606, end: 20070716
  6. PRILOSEC [Concomitant]
     Indication: GASTROOESOPHAGEAL REFLUX DISEASE

REACTIONS (6)
  - ANXIETY [None]
  - BLOOD CHOLESTEROL INCREASED [None]
  - CEREBROVASCULAR ACCIDENT [None]
  - INFLUENZA LIKE ILLNESS [None]
  - INSOMNIA [None]
  - NAUSEA [None]
